FAERS Safety Report 8603537-4 (Version None)
Quarter: 2012Q3

REPORT INFORMATION
  Report Type: 
  Country: None (occurrence: None)
  Receive Date: 20120817
  Receipt Date: 20120810
  Transmission Date: 20120928
  Serious: Yes (Hospitalization, Other)
  Sender: FDA-Public Use
  Company Number: DE-PFIZER INC-2012155689

PATIENT
  Age: 44 Year
  Sex: Male
  Weight: 80 kg

DRUGS (9)
  1. GEMTUZUMAB OZOGAMICIN [Suspect]
     Indication: ACUTE MYELOID LEUKAEMIA
     Dosage: 6 MG, 1X/DAY
     Dates: start: 20120606, end: 20120606
  2. TRETINOIN [Suspect]
     Indication: ACUTE MYELOID LEUKAEMIA
     Dosage: 90 MG, DAILY
     Dates: start: 20120611, end: 20120612
  3. IDARUBICIN HCL [Suspect]
     Dosage: 24 MG, DAILY
     Dates: start: 20120608, end: 20120608
  4. ETOPOSIDE [Suspect]
     Indication: ACUTE MYELOID LEUKAEMIA
     Dosage: 200 MG, DAILY
     Dates: start: 20120606, end: 20120608
  5. IDARUBICIN HCL [Suspect]
     Dosage: 24 MG, DAILY
     Dates: start: 20120610, end: 20120610
  6. TRETINOIN [Suspect]
     Dosage: 30 MG, DAILY
     Dates: start: 20120613, end: 20120616
  7. TRETINOIN [Suspect]
     Dosage: 30 MG, DAILY
     Dates: start: 20120621, end: 20120621
  8. CYTARABINE [Suspect]
     Indication: ACUTE MYELOID LEUKAEMIA
     Dosage: 200 MG, DAILY
     Dates: start: 20120606, end: 20120612
  9. IDARUBICIN HCL [Suspect]
     Indication: ACUTE MYELOID LEUKAEMIA
     Dosage: 24 MG, DAILY
     Dates: start: 20120606, end: 20120606

REACTIONS (1)
  - PNEUMONIA [None]
